FAERS Safety Report 13082022 (Version 1)
Quarter: 2017Q1

REPORT INFORMATION
  Report Type: Report from Study
  Country: JP (occurrence: JP)
  Receive Date: 20170103
  Receipt Date: 20170103
  Transmission Date: 20170428
  Serious: Yes (Hospitalization, Other)
  Sender: FDA-Public Use
  Company Number: JP-PFIZER INC-2016568228

PATIENT
  Age: 80 Year
  Sex: Female
  Weight: 58 kg

DRUGS (7)
  1. DONEPEZIL HCL [Suspect]
     Active Substance: DONEPEZIL HYDROCHLORIDE
     Dosage: PLACEBO OR 5 MG, 1X/DAY
     Route: 048
     Dates: start: 20160810, end: 20160906
  2. DONEPEZIL HCL [Suspect]
     Active Substance: DONEPEZIL HYDROCHLORIDE
     Dosage: 5 MG OR 10 MG, 1X/DAY
     Route: 048
     Dates: start: 20161102, end: 20161108
  3. DONEPEZIL HCL [Suspect]
     Active Substance: DONEPEZIL HYDROCHLORIDE
     Dosage: PLACEBO OR 10 MG, 1X/DAY
     Route: 048
     Dates: start: 20160907, end: 20161018
  4. TSUMURA YOKUKANSAN EXTRACT GRANULES FOR ETHICAL USE [Suspect]
     Active Substance: HERBALS
     Indication: DEMENTIA WITH LEWY BODIES
     Dosage: 5 G, 2X/DAY
     Route: 048
     Dates: start: 20160614, end: 20161129
  5. DONEPEZIL HCL [Suspect]
     Active Substance: DONEPEZIL HYDROCHLORIDE
     Indication: DEMENTIA WITH LEWY BODIES
     Dosage: PLACEBO OR 3 MG, 1X/DAY
     Route: 048
     Dates: start: 20160727, end: 20160809
  6. DONEPEZIL HCL [Suspect]
     Active Substance: DONEPEZIL HYDROCHLORIDE
     Dosage: 3 MG OR 10 MG, 1X/DAY
     Route: 048
     Dates: start: 20161019, end: 20161101
  7. AMLODIPINE BESILATE [Suspect]
     Active Substance: AMLODIPINE BESYLATE
     Dosage: UNK
     Dates: start: 20161018, end: 20161126

REACTIONS (2)
  - Hepatic cyst [None]
  - Drug-induced liver injury [Recovering/Resolving]

NARRATIVE: CASE EVENT DATE: 20161018
